FAERS Safety Report 11950263 (Version 1)
Quarter: 2016Q1

REPORT INFORMATION
  Report Type: Report from Study
  Country: US (occurrence: US)
  Receive Date: 20160125
  Receipt Date: 20160125
  Transmission Date: 20160526
  Serious: No
  Sender: FDA-Public Use
  Company Number: US-ABBVIE-15K-163-1333840-00

PATIENT
  Age: 23 Year
  Sex: Female

DRUGS (1)
  1. HUMIRA [Suspect]
     Active Substance: ADALIMUMAB
     Indication: CROHN^S DISEASE
     Route: 065
     Dates: start: 20141106

REACTIONS (5)
  - Adverse drug reaction [Unknown]
  - Menorrhagia [Unknown]
  - Increased tendency to bruise [Unknown]
  - Haemorrhoids [Unknown]
  - Menstruation delayed [Unknown]

NARRATIVE: CASE EVENT DATE: 2014
